FAERS Safety Report 7781351-X (Version None)
Quarter: 2011Q3

REPORT INFORMATION
  Report Type: 
  Country: None (occurrence: None)
  Receive Date: 20110927
  Receipt Date: 20110912
  Transmission Date: 20111222
  Serious: Yes (Other)
  Sender: FDA-Public Use
  Company Number: GB-WATSON-2011-15365

PATIENT
  Age: 16 Year
  Sex: Male

DRUGS (2)
  1. DOXYCYCLINE [Suspect]
     Indication: PANNICULITIS
     Dosage: 100 MG BID
  2. DICLOFENAC SODIUM [Suspect]
     Indication: PANNICULITIS
     Dosage: 50 MG TID

REACTIONS (5)
  - HEPATOTOXICITY [None]
  - PANNICULITIS [None]
  - DRUG INEFFECTIVE [None]
  - CONDITION AGGRAVATED [None]
  - HEPATIC ENZYME INCREASED [None]
